FAERS Safety Report 4636577-0 (Version None)
Quarter: 2005Q2

REPORT INFORMATION
  Report Type: 
  Country: None (occurrence: None)
  Receive Date: 20050414
  Receipt Date: 20050329
  Transmission Date: 20051028
  Serious: Yes (Life-Threatening, Hospitalization)
  Sender: FDA-Public Use
  Company Number: 2004-BP-07912BP

PATIENT
  Age: 24 Year
  Sex: Female

DRUGS (2)
  1. VIRAMUNE [Suspect]
     Indication: HUMAN IMMUNODEFICIENCY VIRUS TRANSMISSION
     Dosage: 1 BID,  PO
     Route: 048
  2. COMBIVIR [Concomitant]
     Indication: HIV INFECTION
     Dosage: 1  BID,  PO
     Route: 048

REACTIONS (6)
  - ANAEMIA [None]
  - DRUG EXPOSURE DURING PREGNANCY [None]
  - DRUG TOXICITY [None]
  - HEADACHE [None]
  - LYMPHOCYTE COUNT ABNORMAL [None]
  - THIRD STAGE POSTPARTUM HAEMORRHAGE [None]
